FAERS Safety Report 19182509 (Version 1)
Quarter: 2021Q2

REPORT INFORMATION
  Report Type: Spontaneous
  Country: US (occurrence: US)
  Receive Date: 20210426
  Receipt Date: 20210426
  Transmission Date: 20210717
  Serious: Yes (Other)
  Sender: FDA-Public Use
  Company Number: US-LUNDBECK-DKLU3032035

PATIENT
  Age: 8 Month
  Sex: Female

DRUGS (3)
  1. SABRIL [Suspect]
     Active Substance: VIGABATRIN
     Dosage: DAY 4 TO 6
     Route: 048
  2. SABRIL [Suspect]
     Active Substance: VIGABATRIN
     Indication: INFANTILE SPASMS
     Dosage: DAY 1 TO 3
     Route: 048
     Dates: start: 20210319
  3. SABRIL [Suspect]
     Active Substance: VIGABATRIN
     Dosage: DAY 7 AND THEREAFTER
     Route: 048

REACTIONS (3)
  - Staring [Unknown]
  - Product dose omission issue [Unknown]
  - Drug withdrawal convulsions [Unknown]

NARRATIVE: CASE EVENT DATE: 20210416
